FAERS Safety Report 5293083-0 (Version None)
Quarter: 2007Q2

REPORT INFORMATION
  Report Type: 
  Country: None (occurrence: None)
  Receive Date: 20070411
  Receipt Date: 20070403
  Transmission Date: 20071010
  Serious: Yes (Death)
  Sender: FDA-Public Use
  Company Number: PHEH2007US04016

PATIENT
  Age: 46 Year
  Sex: Female

DRUGS (7)
  1. ZELNORM [Suspect]
     Indication: CONSTIPATION
     Dosage: 6 MG, BID
     Route: 048
     Dates: start: 20040101
  2. LOTREL [Concomitant]
  3. CYMBALTA [Concomitant]
  4. CELEXA [Concomitant]
  5. PANLOR DC [Concomitant]
  6. ROBAXIN [Concomitant]
  7. ALEVE [Concomitant]

REACTIONS (1)
  - DEATH [None]
